FAERS Safety Report 5788227-8 (Version None)
Quarter: 2008Q2

REPORT INFORMATION
  Report Type: 
  Country: None (occurrence: None)
  Receive Date: 20080625
  Receipt Date: 20080616
  Transmission Date: 20081010
  Serious: Yes (Other)
  Sender: FDA-Public Use
  Company Number: US-PFIZER INC-2008050448

PATIENT
  Sex: Male
  Weight: 91.6 kg

DRUGS (4)
  1. GEODON [Suspect]
     Indication: BIPOLAR DISORDER
     Route: 048
     Dates: start: 20080101, end: 20080101
  2. ABILIFY [Suspect]
     Indication: BIPOLAR DISORDER
     Dates: start: 20080101, end: 20080101
  3. MORPHINE [Concomitant]
     Indication: BACK INJURY
  4. HYDROCHLOROTHIAZIDE [Concomitant]
     Indication: HYPERTENSION

REACTIONS (7)
  - BLOOD PRESSURE INCREASED [None]
  - CARDIAC DISORDER [None]
  - CONVULSION [None]
  - FEAR OF DEATH [None]
  - MIGRAINE [None]
  - THYROID FUNCTION TEST ABNORMAL [None]
  - VISUAL ACUITY REDUCED [None]
